FAERS Safety Report 16087830 (Version 1)
Quarter: 2019Q1

REPORT INFORMATION
  Report Type: Spontaneous
  Country: HU (occurrence: HU)
  Receive Date: 20190319
  Receipt Date: 20190319
  Transmission Date: 20190418
  Serious: Yes (Hospitalization, Other)
  Sender: FDA-Public Use
  Company Number: HU-ACCORD-113207

PATIENT
  Age: 43 Year
  Sex: Male

DRUGS (5)
  1. POTASSIUM [Suspect]
     Active Substance: POTASSIUM
     Indication: PRODUCT USED FOR UNKNOWN INDICATION
     Route: 065
     Dates: start: 2017
  2. FUROSEMIDE. [Suspect]
     Active Substance: FUROSEMIDE
     Indication: PRODUCT USED FOR UNKNOWN INDICATION
     Route: 065
     Dates: start: 2017
  3. RAMIPRIL. [Suspect]
     Active Substance: RAMIPRIL
     Indication: PRODUCT USED FOR UNKNOWN INDICATION
     Route: 065
     Dates: start: 2017
  4. PANTOPRAZOLE [Suspect]
     Active Substance: PANTOPRAZOLE
     Indication: PRODUCT USED FOR UNKNOWN INDICATION
     Route: 065
     Dates: start: 2017
  5. METOPROLOL. [Suspect]
     Active Substance: METOPROLOL
     Indication: PRODUCT USED FOR UNKNOWN INDICATION
     Route: 065
     Dates: start: 2017

REACTIONS (21)
  - Vomiting [Recovered/Resolved]
  - Hypotension [Recovered/Resolved]
  - Tachypnoea [Recovered/Resolved]
  - Infarction [Recovering/Resolving]
  - Cardiac dysfunction [Recovered/Resolved]
  - Hiccups [Unknown]
  - Hepatitis E [Unknown]
  - Pneumonia [Recovering/Resolving]
  - Polyuria [Recovering/Resolving]
  - Acute hepatic failure [Recovering/Resolving]
  - Aortic stenosis [Recovering/Resolving]
  - Metabolic acidosis [Recovered/Resolved]
  - Loss of consciousness [Recovered/Resolved]
  - Degenerative aortic valve disease [Recovering/Resolving]
  - Pulmonary embolism [Recovering/Resolving]
  - Atrioventricular block [Unknown]
  - Dyspnoea [Recovered/Resolved]
  - Cardiac failure [Unknown]
  - Pericardial effusion [Unknown]
  - Hydrothorax [Unknown]
  - Leptospirosis [Unknown]

NARRATIVE: CASE EVENT DATE: 2017
